FAERS Safety Report 7518657-5 (Version None)
Quarter: 2011Q2

REPORT INFORMATION
  Report Type: 
  Country: None (occurrence: None)
  Receive Date: 20110601
  Receipt Date: 20110601
  Transmission Date: 20111010
  Serious: No
  Sender: FDA-Public Use
  Company Number: None

PATIENT
  Age: 45 Year
  Sex: Female
  Weight: 59.8748 kg

DRUGS (1)
  1. XYREM [Suspect]
     Indication: NARCOLEPSY
     Dosage: 2.5MG 1ST PM + 2ND DOSE 4HRS LATER PO
     Route: 048

REACTIONS (9)
  - ANXIETY [None]
  - GASTRIC DISORDER [None]
  - HUNGER [None]
  - PSYCHOTIC DISORDER [None]
  - AGITATION [None]
  - PARANOIA [None]
  - FAECAL INCONTINENCE [None]
  - DELUSION [None]
  - VOMITING [None]
